FAERS Safety Report 7942616-1 (Version None)
Quarter: 2011Q4

REPORT INFORMATION
  Report Type: 
  Country: None (occurrence: None)
  Receive Date: 20111128
  Receipt Date: 20111122
  Transmission Date: 20120403
  Serious: Yes (Other)
  Sender: FDA-Public Use
  Company Number: US-BRISTOL-MYERS SQUIBB COMPANY-16243552

PATIENT
  Age: 69 Year
  Sex: Female
  Weight: 63 kg

DRUGS (10)
  1. MULTI-VITAMIN [Concomitant]
  2. LEXAPRO [Concomitant]
  3. RISPERDAL CONSTA [Concomitant]
     Dates: start: 20110526
  4. WARFARIN SODIUM [Suspect]
     Indication: PULMONARY EMBOLISM
     Dosage: 5MG
  5. CALCIUM [Concomitant]
     Indication: MINERAL SUPPLEMENTATION
  6. WELLBUTRIN SR [Concomitant]
  7. CRANBERRY [Concomitant]
     Dosage: CRANBERRY FORTE
  8. KEFLEX [Concomitant]
  9. ABILIFY [Suspect]
     Indication: SCHIZOPHRENIA
  10. LORAZEPAM [Concomitant]

REACTIONS (1)
  - SCHIZOPHRENIA [None]
